FAERS Safety Report 9785878 (Version 1)
Quarter: 2013Q4

REPORT INFORMATION
  Report Type: Spontaneous
  Country: GB (occurrence: None)
  Receive Date: 20131223
  Receipt Date: 20131223
  Transmission Date: 20140711
  Serious: Yes (Other)
  Sender: FDA-Public Use
  Company Number: AUR-APL-2013-10610

PATIENT
  Age: 78 Year
  Sex: Female
  Weight: 69 kg

DRUGS (12)
  1. AMOXICILLIN+CLAVULANIC ACID (CLAVULANIC ACID, AMOXICILLIN) [Suspect]
     Indication: PRODUCT USED FOR UNKNOWN INDICATION
  2. FUROSEMIDE (FUROSEMIDE) [Concomitant]
  3. HYDROXYCHLOROQUINE SULFATE (HYDROXYCHLOROQUINE SULFATE) [Concomitant]
  4. LERCANIDIPINE HYDROCHLORIDE [Concomitant]
  5. METFORMIN (METFORMIN) [Concomitant]
  6. MICONAZOLE (MICONAZOLE) [Concomitant]
  7. MOMETASONE (MOMETASONE) [Concomitant]
  8. PAROXETINE (PAROXETINE) [Concomitant]
  9. PERINDOPRIL ERBUMINE (PERINDOPRIL ERBUMINE) [Concomitant]
  10. PILOCARPINE HYDROCHLORIDE (PILOCARPINE HYDROCHLORIDE) [Concomitant]
  11. SIMVASTATIN (SIMVASTATIN) [Concomitant]
  12. WARFARIN SODIUM (WARFARIN SODIUM) [Concomitant]

REACTIONS (1)
  - Malaise [None]
